FAERS Safety Report 13500374 (Version 1)
Quarter: 2017Q2

REPORT INFORMATION
  Report Type: Spontaneous
  Country: NL (occurrence: NL)
  Receive Date: 20170501
  Receipt Date: 20170501
  Transmission Date: 20170830
  Serious: Yes (Other)
  Sender: FDA-Public Use
  Company Number: NL-PFIZER INC-2017182124

PATIENT
  Age: 16 Year
  Sex: Female
  Weight: 59 kg

DRUGS (1)
  1. ETHINYLESTRADIOL/LEVONORGESTREL [Suspect]
     Active Substance: ETHINYL ESTRADIOL\LEVONORGESTREL
     Indication: CONTRACEPTION
     Dosage: 1 DF, CYCLIC
     Route: 048
     Dates: start: 20050501, end: 20121101

REACTIONS (5)
  - Vaginal haemorrhage [Recovered/Resolved]
  - Mood swings [Recovered/Resolved]
  - Suicidal ideation [Recovered/Resolved]
  - Depressed mood [Recovered/Resolved]
  - Abdominal pain [Recovered/Resolved]

NARRATIVE: CASE EVENT DATE: 20051201
